FAERS Safety Report 4411353-2 (Version None)
Quarter: 2004Q3

REPORT INFORMATION
  Report Type: 
  Country: None (occurrence: None)
  Receive Date: 20040727
  Receipt Date: 20040712
  Transmission Date: 20050211
  Serious: Yes (Other)
  Sender: FDA-Public Use
  Company Number: USA-2002-004648

PATIENT
  Age: 65 Year
  Sex: Female

DRUGS (2)
  1. PRIMOLUT NOR (NORETHISTERONE ACETATE) TABLET, 2.0MG [Suspect]
     Indication: HORMONE REPLACEMENT THERAPY
     Dosage: 2 MG/D, 12 DAYS EVERY 6 WEEKS, ORAL
     Route: 048
     Dates: start: 20000801, end: 20020801
  2. LINDISC (ESTRADIOL HEMIHYDRATE) PATCH [Suspect]
     Indication: HORMONE REPLACEMENT THERAPY
     Dosage: 50 UG, CONT, TRANSDERMAL
     Route: 062
     Dates: start: 20000801, end: 20020801

REACTIONS (1)
  - VITREOUS DETACHMENT [None]
